FAERS Safety Report 23974004 (Version 1)
Quarter: 2024Q2

REPORT INFORMATION
  Report Type: Spontaneous
  Country: DK (occurrence: DK)
  Receive Date: 20240613
  Receipt Date: 20240613
  Transmission Date: 20240716
  Serious: Yes (Life-Threatening, Other)
  Sender: FDA-Public Use
  Company Number: None

PATIENT
  Age: 66 Year
  Sex: Female
  Weight: 84 kg

DRUGS (2)
  1. TECVAYLI [Suspect]
     Active Substance: TECLISTAMAB-CQYV
     Indication: Amyloidosis
     Dosage: 0.06 MG/KG ADMINISTERED ONCE AS FIRST STEP UP DOSE
     Route: 058
     Dates: start: 20240507, end: 202405
  2. TECVAYLI [Suspect]
     Active Substance: TECLISTAMAB-CQYV
     Indication: Plasma cell disorder

REACTIONS (8)
  - Posterior reversible encephalopathy syndrome [Recovering/Resolving]
  - Hallucination [Recovering/Resolving]
  - Delirium [Recovering/Resolving]
  - Pyrexia [Unknown]
  - Restlessness [Recovering/Resolving]
  - Psychotic disorder [Recovering/Resolving]
  - Cognitive disorder [Recovering/Resolving]
  - Chills [Unknown]

NARRATIVE: CASE EVENT DATE: 20240501
